FAERS Safety Report 5388402-0 (Version None)
Quarter: 2007Q3

REPORT INFORMATION
  Report Type: 
  Country: None (occurrence: None)
  Receive Date: 20070711
  Receipt Date: 20070628
  Transmission Date: 20080115
  Serious: Yes (Life-Threatening)
  Sender: FDA-Public Use
  Company Number: 16879

PATIENT
  Age: 40 Year
  Sex: Female
  Weight: 65 kg

DRUGS (5)
  1. ATRACURIUM BESYLATE [Suspect]
     Indication: NEUROMUSCULAR BLOCKADE
     Dosage: 30 MG FEQE   IV
     Route: 042
     Dates: start: 20070606, end: 20070606
  2. FENTANYL TRANSDERMAL SYSTEM [Concomitant]
  3. MIDAZOLAM HCL [Concomitant]
  4. MORPHINE [Concomitant]
  5. PROPOFOL [Concomitant]

REACTIONS (2)
  - ABDOMINAL PAIN LOWER [None]
  - CIRCULATORY COLLAPSE [None]
